FAERS Safety Report 6198650-8 (Version None)
Quarter: 2009Q2

REPORT INFORMATION
  Report Type: 
  Country: None (occurrence: None)
  Receive Date: 20090521
  Receipt Date: 20090511
  Transmission Date: 20091009
  Serious: Yes (Hospitalization)
  Sender: FDA-Public Use
  Company Number: NZ-ABBOTT-09P-118-0569997-00

PATIENT
  Sex: Female
  Weight: 83 kg

DRUGS (19)
  1. HUMIRA [Suspect]
     Indication: RHEUMATOID ARTHRITIS
     Route: 058
     Dates: start: 20081209, end: 20090414
  2. METHOTREXATE [Suspect]
     Indication: RHEUMATOID ARTHRITIS
     Route: 048
     Dates: start: 20081209
  3. METHOTREXATE [Suspect]
     Route: 048
     Dates: start: 20090303, end: 20090406
  4. METFORMIN HCL [Concomitant]
     Indication: DIABETES MELLITUS
     Dates: start: 20011203
  5. LOSEC [Concomitant]
     Indication: PROPHYLAXIS AGAINST GASTROINTESTINAL ULCER
     Dates: start: 20021024
  6. LIPITOR [Concomitant]
     Indication: HYPERCHOLESTEROLAEMIA
     Dates: start: 20020101
  7. GLICLAZIDE [Concomitant]
     Indication: DIABETES MELLITUS
     Dates: start: 20080124
  8. FUROSEMIDE [Concomitant]
     Indication: HYPERTENSION
     Dates: start: 20081118
  9. TRIAZOLAM [Concomitant]
     Indication: INSOMNIA
     Dates: start: 20080101
  10. NAPROXEN SODIUM [Concomitant]
     Indication: RHEUMATOID ARTHRITIS
     Dates: start: 20080801
  11. COLECALCIFEROL [Concomitant]
     Indication: OSTEOPOROSIS PROPHYLAXIS
     Dates: start: 20080124
  12. COLECALCIFEROL [Concomitant]
     Indication: OSTEOPENIA
  13. VITAMIN B-12 [Concomitant]
     Indication: VITAMIN B12 DEFICIENCY
     Dates: start: 20080121
  14. FOLIC ACID [Concomitant]
     Indication: PROPHYLAXIS
     Dates: start: 20081212
  15. FLOXACILLIN SODIUM [Concomitant]
     Indication: LIP BLISTER
     Dates: start: 20090216, end: 20090222
  16. SOFRAMYCIN [Concomitant]
     Indication: LIP BLISTER
     Route: 061
     Dates: start: 20090227
  17. SALAMOL [Concomitant]
     Indication: ASTHMA
     Dates: start: 20090414
  18. ALANASE [Concomitant]
     Indication: SINUS CONGESTION
     Dates: start: 20090216
  19. COMBIVENT [Concomitant]
     Indication: ASTHMA

REACTIONS (1)
  - PNEUMONITIS [None]
